FAERS Safety Report 8075389-5 (Version None)
Quarter: 2012Q1

REPORT INFORMATION
  Report Type: 
  Country: None (occurrence: None)
  Receive Date: 20120127
  Receipt Date: 20120119
  Transmission Date: 20120608
  Serious: Yes (Other)
  Sender: FDA-Public Use
  Company Number: US-BAYER-2011-087368

PATIENT
  Sex: Female

DRUGS (11)
  1. DROSPIRENONE AND ETHINYL ESTRADIOL [Suspect]
  2. VICODIN [Concomitant]
  3. FLOVENT [Concomitant]
  4. YAZ [Suspect]
  5. ALBUTEROL [Concomitant]
  6. ONDANSETRON HCL [Concomitant]
  7. ZYRTEC [Concomitant]
  8. YASMIN [Suspect]
  9. ADVAIR DISKUS 100/50 [Concomitant]
  10. PROTONIX [Concomitant]
  11. ELAVIL [Concomitant]

REACTIONS (3)
  - CHOLECYSTITIS CHRONIC [None]
  - INJURY [None]
  - PAIN [None]
